FAERS Safety Report 8223198-6 (Version None)
Quarter: 2012Q1

REPORT INFORMATION
  Report Type: 
  Country: None (occurrence: None)
  Receive Date: 20120321
  Receipt Date: 20120315
  Transmission Date: 20120608
  Serious: Yes (Death, Hospitalization)
  Sender: FDA-Public Use
  Company Number: DE-ROCHE-1009730

PATIENT
  Age: 54 Year
  Sex: Male
  Weight: 88 kg

DRUGS (10)
  1. ZOPICLON [Concomitant]
     Dates: start: 20111025
  2. VEMURAFENIB [Suspect]
     Indication: METASTATIC MALIGNANT MELANOMA
     Dosage: LAST DOSE PRIOR TO SAE 21 NOV 2011
     Route: 048
     Dates: start: 20111101
  3. FENTANYL-100 [Concomitant]
     Dosage: 12 UG/H/L/L
     Dates: start: 20111017, end: 20111121
  4. PANTOPRAZOLE [Concomitant]
     Dates: start: 20111027
  5. FENTANYL-100 [Concomitant]
     Dosage: 25 UG/H/L/L
     Dates: start: 20111121
  6. RESTEX [Concomitant]
     Dosage: 100/25 MG
     Dates: start: 20111025
  7. DEXAMETHASONE SODIUM PHOSPHATE [Concomitant]
     Dates: start: 20111026, end: 20111121
  8. IBUPROFEN [Concomitant]
     Dates: start: 20111027, end: 20111122
  9. METAMIZOL [Concomitant]
     Dates: start: 20111017
  10. MOVIPREP [Concomitant]
     Dates: start: 20111017

REACTIONS (3)
  - ANAEMIA [None]
  - GENERAL PHYSICAL HEALTH DETERIORATION [None]
  - HYDROCEPHALUS [None]
